FAERS Safety Report 9776837 (Version 2)
Quarter: 2014Q2

REPORT INFORMATION
  Report Type: Spontaneous
  Country: JP (occurrence: JP)
  Receive Date: 20131221
  Receipt Date: 20140408
  Transmission Date: 20141212
  Serious: Yes (Hospitalization, Other)
  Sender: FDA-Public Use
  Company Number: PHHY2013JP149099

PATIENT
  Age: 63 Year
  Sex: Female

DRUGS (7)
  1. FEMARA [Suspect]
     Indication: BREAST CANCER
     Dosage: 2.5 MG, DAILY
     Route: 048
     Dates: start: 20131107, end: 20131129
  2. LOXONIN [Suspect]
     Indication: BREAST CANCER
     Dosage: 60 MG, DAILY
     Route: 048
     Dates: start: 20131024
  3. LOXONIN [Suspect]
     Indication: HEADACHE
     Dosage: 180 MG, DAILY
     Route: 048
     Dates: start: 20131108, end: 20131129
  4. LOXONIN [Suspect]
     Indication: MUSCULOSKELETAL PAIN
  5. HERCEPTIN [Suspect]
     Indication: BREAST CANCER
     Dosage: 8 MG/KG, DAILY
     Route: 041
     Dates: start: 20130726
  6. HERCEPTIN [Suspect]
     Dosage: 6 MG/KG, EVERY 3 WEEKS
     Route: 041
     Dates: end: 20131025
  7. PACLITAXEL [Concomitant]
     Dosage: 70 MG, UNK
     Dates: start: 20130705, end: 20131031

REACTIONS (8)
  - Tubulointerstitial nephritis [Recovered/Resolved with Sequelae]
  - Eosinophil count increased [Recovering/Resolving]
  - Blood creatinine increased [Unknown]
  - Musculoskeletal stiffness [Unknown]
  - Pain [Unknown]
  - Pyrexia [Recovered/Resolved]
  - Arthralgia [Unknown]
  - Decreased appetite [Recovered/Resolved]
